FAERS Safety Report 8104377-5 (Version None)
Quarter: 2012Q1

REPORT INFORMATION
  Report Type: 
  Country: None (occurrence: None)
  Receive Date: 20120130
  Receipt Date: 20120125
  Transmission Date: 20120608
  Serious: Yes (Hospitalization)
  Sender: FDA-Public Use
  Company Number: JP-EISAI INC-E2020-10265-SPO-JP

PATIENT
  Age: 69 Year
  Sex: Female

DRUGS (2)
  1. DISTIGMINE BROMIDE [Interacting]
     Route: 048
  2. ARICEPT [Suspect]
     Dosage: UNKNOWN
     Route: 048

REACTIONS (2)
  - CHOLINERGIC SYNDROME [None]
  - DRUG INTERACTION [None]
